FAERS Safety Report 11755373 (Version 1)
Quarter: 2015Q4

REPORT INFORMATION
  Report Type: Other
  Country: GB (occurrence: GB)
  Receive Date: 20151119
  Receipt Date: 20151119
  Transmission Date: 20160304
  Serious: Yes (Death, Other)
  Sender: FDA-Public Use
  Company Number: GB-MYLANLABS-2015M1039309

PATIENT

DRUGS (3)
  1. NAVELBINE [Suspect]
     Active Substance: VINORELBINE TARTRATE
     Indication: BREAST CANCER
     Dosage: 75 MG, UNK (75 MG, HAD RECEIVED 8 CYCLES OF VINORELBINE IN TOTAL)
     Route: 048
  2. NAVELBINE [Suspect]
     Active Substance: VINORELBINE TARTRATE
     Dosage: 60 MG, HAD RECEIVED 8 CYCLES OF VINORELBINE IN TOTAL
     Route: 048
  3. ONDANSETRON [Suspect]
     Active Substance: ONDANSETRON
     Indication: PRODUCT USED FOR UNKNOWN INDICATION
     Dosage: UNK
     Route: 065

REACTIONS (3)
  - Death [Fatal]
  - Neuropathy peripheral [Unknown]
  - Constipation [Unknown]
